FAERS Safety Report 8990713 (Version 1)
Quarter: 2012Q4

REPORT INFORMATION
  Report Type: 
  Country: US (occurrence: US)
  Receive Date: 20121228
  Receipt Date: 20121228
  Transmission Date: 20130627
  Serious: No
  Sender: FDA-Public Use
  Company Number: US-PFIZER INC-2012328317

PATIENT
  Age: 21 Year
  Sex: Female

DRUGS (2)
  1. BOSULIF [Suspect]
     Indication: CHRONIC MYELOGENOUS LEUKEMIA
     Dosage: 500 mg, UNK
  2. BOSULIF [Suspect]
     Indication: PHILADELPHIA CHROMOSOME POSITIVE

REACTIONS (1)
  - Gastrointestinal tract irritation [Unknown]
